FAERS Safety Report 7607090-3 (Version None)
Quarter: 2011Q3

REPORT INFORMATION
  Report Type: 
  Country: None (occurrence: None)
  Receive Date: 20110713
  Receipt Date: 20110630
  Transmission Date: 20111222
  Serious: Yes (Other)
  Sender: FDA-Public Use
  Company Number: DE-UCBSA-036448

PATIENT
  Sex: Female
  Weight: 60 kg

DRUGS (8)
  1. HYPNOTICS AND TRANQUILIZER [Suspect]
     Dosage: UNKNOWN DOSE
  2. KEPPRA [Suspect]
     Dosage: 1000 MG CTD. TABLET, 4 TABLETS, TOTAL AMOUNT: 4000 MG
     Route: 048
  3. LAMOTRIGINE [Suspect]
     Dosage: 200, 4 TABLETS, TOTAL AMOUNT: 800 MG
     Route: 048
  4. VENLAFAXINE HCL [Suspect]
     Dosage: 75, 4 TABLETS
     Route: 048
  5. VENLAFAXINE HCL [Suspect]
     Dosage: 150, 9 TABLETS
     Route: 048
  6. VENLAFAXINE [Suspect]
     Dosage: 150 RETARD, 4 TABLETS, EXTENDED RELEASE
     Route: 048
  7. BUSCOPAN PLUS [Suspect]
     Dosage: 20 TABLETS
     Route: 048
  8. IBUPROFEN [Suspect]
     Dosage: 400, 2 TABLETS, TOTAL AMOUNT: 800 MG
     Route: 048

REACTIONS (3)
  - COMA [None]
  - MYDRIASIS [None]
  - EXTENSOR PLANTAR RESPONSE [None]
